FAERS Safety Report 17257170 (Version 5)
Quarter: 2020Q1

REPORT INFORMATION
  Report Type: Report from Study
  Country: ZA (occurrence: ZA)
  Receive Date: 20200110
  Receipt Date: 20200316
  Transmission Date: 20200409
  Serious: Yes (Other)
  Sender: FDA-Public Use
  Company Number: NVSC2020ZA003325

PATIENT
  Age: 61 Year
  Sex: Male

DRUGS (2)
  1. COSENTYX [Suspect]
     Active Substance: SECUKINUMAB
     Indication: ANKYLOSING SPONDYLITIS
     Dosage: 150 MG, QW
     Route: 058
     Dates: start: 20191218
  2. COSENTYX [Suspect]
     Active Substance: SECUKINUMAB
     Dosage: 150 MG, QMO
     Route: 058
     Dates: end: 20200127

REACTIONS (6)
  - Pain [Recovering/Resolving]
  - Myocardial infarction [Unknown]
  - Ill-defined disorder [Not Recovered/Not Resolved]
  - Asthenia [Unknown]
  - Inflammatory bowel disease [Unknown]
  - Appendicitis [Unknown]

NARRATIVE: CASE EVENT DATE: 201912
